FAERS Safety Report 5115368-0 (Version None)
Quarter: 2006Q3

REPORT INFORMATION
  Report Type: 
  Country: None (occurrence: None)
  Receive Date: 20060922
  Receipt Date: 20060911
  Transmission Date: 20061208
  Serious: Yes (Hospitalization, Disabling, Other)
  Sender: FDA-Public Use
  Company Number: 2006062300

PATIENT
  Age: 70 Year
  Sex: Male
  Weight: 61.8 kg

DRUGS (5)
  1. SUTENT [Suspect]
     Indication: METASTATIC RENAL CELL CARCINOMA
     Dosage: (37.5 MG, EVENING), ORAL , (25 MG, EVENING); ORAL
     Route: 048
     Dates: start: 20060202, end: 20060302
  2. SUTENT [Suspect]
     Indication: METASTATIC RENAL CELL CARCINOMA
     Dosage: (37.5 MG, EVENING), ORAL , (25 MG, EVENING); ORAL
     Route: 048
     Dates: start: 20060303, end: 20060413
  3. THYRONAJOD (LEVOTHYROXINE SODIUM, POTASSIUM IODINE) [Concomitant]
  4. NOCTAMID [Concomitant]
  5. DECORTIN (PREDNISONE) [Concomitant]

REACTIONS (2)
  - MALIGNANT NEOPLASM PROGRESSION [None]
  - PLEURAL EFFUSION [None]
